FAERS Safety Report 25139423 (Version 1)
Quarter: 2025Q1

REPORT INFORMATION
  Report Type: Report from Study
  Country: US (occurrence: US)
  Receive Date: 20250331
  Receipt Date: 20250331
  Transmission Date: 20250409
  Serious: Yes (Other)
  Sender: ABBVIE
  Company Number: US-ABBVIE-6197954

PATIENT
  Sex: Female

DRUGS (1)
  1. RINVOQ [Suspect]
     Active Substance: UPADACITINIB
     Indication: Crohn^s disease
     Dates: start: 2023

REACTIONS (4)
  - Medical procedure [Unknown]
  - Arterial rupture [Recovering/Resolving]
  - Colonoscopy [Unknown]
  - Endoscopy [Unknown]
